FAERS Safety Report 8496553-7 (Version None)
Quarter: 2012Q3

REPORT INFORMATION
  Report Type: 
  Country: None (occurrence: None)
  Receive Date: 20120709
  Receipt Date: 20120627
  Transmission Date: 20120928
  Serious: No
  Sender: FDA-Public Use
  Company Number: US-ASTRAZENECA-2012SE43456

PATIENT
  Sex: Female

DRUGS (1)
  1. FASLODEX [Suspect]
     Route: 030

REACTIONS (2)
  - TUMOUR MARKER INCREASED [None]
  - INJECTION SITE ERYTHEMA [None]
